FAERS Safety Report 13166986 (Version 1)
Quarter: 2017Q1

REPORT INFORMATION
  Report Type: Spontaneous
  Country: US (occurrence: US)
  Receive Date: 20170130
  Receipt Date: 20170130
  Transmission Date: 20170428
  Serious: Yes (Life-Threatening)
  Sender: FDA-Public Use
  Company Number: None

PATIENT
  Age: 46 Year
  Sex: Female

DRUGS (1)
  1. GENERIC KEPPRA [Suspect]
     Active Substance: LEVETIRACETAM
     Indication: SEIZURE

REACTIONS (2)
  - Product substitution issue [None]
  - Partial seizures [None]

NARRATIVE: CASE EVENT DATE: 20120103
